FAERS Safety Report 4445500-3 (Version None)
Quarter: 2004Q3

REPORT INFORMATION
  Report Type: 
  Country: None (occurrence: None)
  Receive Date: 20040805
  Receipt Date: 20040503
  Transmission Date: 20050211
  Serious: Yes (Other)
  Sender: FDA-Public Use
  Company Number: 2004211665US

PATIENT
  Sex: 0

DRUGS (2)
  1. FLAGYL [Suspect]
  2. VALTREX [Suspect]

REACTIONS (1)
  - THROMBOCYTOPENIA [None]
